FAERS Safety Report 15626768 (Version 1)
Quarter: 2018Q4

REPORT INFORMATION
  Report Type: Spontaneous
  Country: US (occurrence: US)
  Receive Date: 20181116
  Receipt Date: 20181116
  Transmission Date: 20190205
  Serious: Yes (Disabling)
  Sender: FDA-Public Use
  Company Number: None

PATIENT
  Age: 35 Year
  Sex: Female
  Weight: 48.15 kg

DRUGS (9)
  1. LILLOW [Concomitant]
     Active Substance: ETHINYL ESTRADIOL\LEVONORGESTREL
  2. CIPRO [Concomitant]
     Active Substance: CIPROFLOXACIN HYDROCHLORIDE
  3. VITAMIN B12 [Concomitant]
     Active Substance: CYANOCOBALAMIN
  4. MAGNESIUM [Concomitant]
     Active Substance: MAGNESIUM
  5. CIPROFLOXACIN. [Suspect]
     Active Substance: CIPROFLOXACIN
     Indication: DIARRHOEA INFECTIOUS
     Dosage: ?          QUANTITY:1 CAPSULE(S);?
     Route: 048
     Dates: start: 20170920, end: 20171002
  6. GABA [Concomitant]
     Active Substance: HOMEOPATHICS
  7. VITAMIN C [Concomitant]
     Active Substance: ASCORBIC ACID
  8. MULTIVITAMIN [Concomitant]
     Active Substance: VITAMINS
  9. L THEIANINE [Concomitant]

REACTIONS (8)
  - Abdominal discomfort [None]
  - Depression [None]
  - Feeding disorder [None]
  - Nervousness [None]
  - Anxiety [None]
  - Chills [None]
  - Mood swings [None]
  - Inappropriate affect [None]

NARRATIVE: CASE EVENT DATE: 20181101
